FAERS Safety Report 9092650 (Version 1)
Quarter: 2013Q1

REPORT INFORMATION
  Report Type: Report from Study
  Country: US (occurrence: US)
  Receive Date: 20130201
  Receipt Date: 20130201
  Transmission Date: 20140127
  Serious: No
  Sender: FDA-Public Use
  Company Number: US-ABBOTT-13P-163-1031018-00

PATIENT
  Sex: Female
  Weight: 109.41 kg

DRUGS (5)
  1. HUMIRA [Suspect]
     Indication: PSORIATIC ARTHROPATHY
     Dates: start: 201202
  2. FLUOXETINE [Concomitant]
     Indication: DEPRESSION
  3. NEURONTIN [Concomitant]
     Indication: PAIN
  4. PREDNISONE [Concomitant]
     Indication: PSORIATIC ARTHROPATHY
  5. VITAMIN D [Concomitant]
     Indication: VITAMIN SUPPLEMENTATION

REACTIONS (1)
  - Pelvic pain [Not Recovered/Not Resolved]
